FAERS Safety Report 4706332-1 (Version None)
Quarter: 2005Q2

REPORT INFORMATION
  Report Type: 
  Country: None (occurrence: None)
  Receive Date: 20050629
  Receipt Date: 20050618
  Transmission Date: 20051028
  Serious: No
  Sender: FDA-Public Use
  Company Number: 2005-BP-10643RO

PATIENT
  Age: 57 Year
  Sex: Female

DRUGS (4)
  1. MIDAZOLAM HCL [Suspect]
     Indication: ANAESTHESIA
     Dosage: 2 MG ONCE
  2. ETOMIDATE [Suspect]
     Indication: ANAESTHESIA
     Dosage: 19 MG ONCE
  3. FENTANYL [Suspect]
     Indication: ANAESTHESIA
     Dosage: 250 MCG ONCE
  4. VECURONIUM (VECURONIUM) [Suspect]
     Indication: ANAESTHESIA
     Dosage: 10 MG ONCE

REACTIONS (7)
  - BLOOD BILIRUBIN INCREASED [None]
  - CYANOSIS [None]
  - HEART RATE INCREASED [None]
  - HYPOTENSION [None]
  - MYOCARDIAL RUPTURE [None]
  - THROMBOSIS [None]
  - VENTRICULAR TACHYCARDIA [None]
